FAERS Safety Report 11432377 (Version 1)
Quarter: 2015Q3

REPORT INFORMATION
  Report Type: Spontaneous
  Country: JP (occurrence: JP)
  Receive Date: 20150828
  Receipt Date: 20150828
  Transmission Date: 20151125
  Serious: Yes (Death, Other)
  Sender: FDA-Public Use
  Company Number: JP-MYLANLABS-JP2013332219

PATIENT

DRUGS (2)
  1. CYTARABINE. [Suspect]
     Active Substance: CYTARABINE
     Indication: B-CELL LYMPHOMA
     Dosage: 40 OR 30MG, TOTAL DOSES OF 640MG IN 8 MONTHS #2
     Route: 037
  2. METHOTREXATE [Suspect]
     Active Substance: METHOTREXATE
     Indication: B-CELL LYMPHOMA
     Dosage: 15 OR 12MG, TOTAL DOSES OF 243 IN 8 MONTHS
     Route: 037

REACTIONS (2)
  - Necrosis [Unknown]
  - Myelopathy [Fatal]
